FAERS Safety Report 7687222-1 (Version None)
Quarter: 2011Q3

REPORT INFORMATION
  Report Type: 
  Country: None (occurrence: None)
  Receive Date: 20110816
  Receipt Date: 20110812
  Transmission Date: 20111222
  Serious: Yes (Disabling)
  Sender: FDA-Public Use
  Company Number: CA-BAYER-2011-053915

PATIENT
  Age: 70 Year
  Sex: Male
  Weight: 98 kg

DRUGS (1)
  1. CIPRO XR [Suspect]
     Indication: CYSTITIS NONINFECTIVE
     Dosage: UNK
     Route: 048
     Dates: start: 20100531, end: 20100610

REACTIONS (2)
  - GAIT DISTURBANCE [None]
  - ACTIVITIES OF DAILY LIVING IMPAIRED [None]
